FAERS Safety Report 6036679-0 (Version None)
Quarter: 2009Q1

REPORT INFORMATION
  Report Type: 
  Country: None (occurrence: None)
  Receive Date: 20090114
  Receipt Date: 20090108
  Transmission Date: 20090719
  Serious: Yes (Death)
  Sender: FDA-Public Use
  Company Number: US-BIOGENIDEC-2008BI034273

PATIENT
  Age: 58 Year
  Sex: Male

DRUGS (2)
  1. TYSABRI [Suspect]
     Indication: MULTIPLE SCLEROSIS
     Route: 042
     Dates: start: 20070109, end: 20070622
  2. TYSABRI [Suspect]
     Route: 042
     Dates: start: 20071109, end: 20081029

REACTIONS (1)
  - MYOCARDIAL INFARCTION [None]
